FAERS Safety Report 10712996 (Version 1)
Quarter: 2015Q1

REPORT INFORMATION
  Report Type: Spontaneous
  Country: US (occurrence: US)
  Receive Date: 20150115
  Receipt Date: 20150115
  Transmission Date: 20150721
  Serious: No
  Sender: FDA-Public Use
  Company Number: US-SHIRE-US201500240

PATIENT
  Sex: Male

DRUGS (2)
  1. VYVANSE [Suspect]
     Active Substance: LISDEXAMFETAMINE DIMESYLATE
     Indication: PRODUCT USED FOR UNKNOWN INDICATION
     Dosage: 40 MG, UNKNOWN (DURING WEEK)
     Route: 048
  2. VYVANSE [Suspect]
     Active Substance: LISDEXAMFETAMINE DIMESYLATE
     Dosage: UNK (PARTIAL DOSE OF 40 MG CAPSULE), UNKNOWN (ON WEEKENDS)
     Route: 048

REACTIONS (3)
  - Incorrect dose administered [Not Recovered/Not Resolved]
  - Product quality issue [Unknown]
  - No adverse event [Not Recovered/Not Resolved]
